FAERS Safety Report 8936006 (Version 1)
Quarter: 2012Q4

REPORT INFORMATION
  Report Type: Spontaneous
  Country: US (occurrence: None)
  Receive Date: 20121128
  Receipt Date: 20121128
  Transmission Date: 20130627
  Serious: Yes (Hospitalization)
  Sender: FDA-Public Use
  Company Number: None

PATIENT
  Age: 63 Year
  Sex: Female
  Weight: 59.1 kg

DRUGS (1)
  1. ACETAMINOPHEN/HYDROCODONE [Suspect]
     Indication: NECK PAIN
     Route: 048
     Dates: start: 20040529, end: 20121026

REACTIONS (3)
  - Constipation [None]
  - Faecaloma [None]
  - Abdominal pain [None]
